FAERS Safety Report 9954800 (Version 1)
Quarter: 2014Q1

REPORT INFORMATION
  Report Type: Report from Study
  Country: US (occurrence: US)
  Receive Date: 20140304
  Receipt Date: 20140304
  Transmission Date: 20141002
  Serious: No
  Sender: FDA-Public Use
  Company Number: US-ABBVIE-13P-163-1083554-00

PATIENT
  Age: 63 Year
  Sex: Male

DRUGS (4)
  1. HUMIRA [Suspect]
     Indication: PSORIASIS
     Dates: start: 20121127
  2. ASA [Concomitant]
     Indication: PAIN
     Dosage: 325 MG 2 TABS AS NEEDED ALTERNATING W/IBUPROFEN
  3. IBUPROFEN (OTC) [Concomitant]
     Indication: PAIN
     Dosage: 2 TABS AS NEEDED ALTERNATING WITH ASA
  4. IBUPROFEN (OTC) [Concomitant]
     Indication: HEADACHE

REACTIONS (2)
  - Rash erythematous [Recovered/Resolved]
  - Hypertension [Recovered/Resolved]
